FAERS Safety Report 14992385 (Version 1)
Quarter: 2018Q2

REPORT INFORMATION
  Report Type: Spontaneous
  Country: FR (occurrence: FR)
  Receive Date: 20180609
  Receipt Date: 20180609
  Transmission Date: 20180711
  Serious: Yes (Death)
  Sender: FDA-Public Use
  Company Number: FR-AUROBINDO-AUR-APL-2018-029337

PATIENT
  Age: 67 Year
  Sex: Male

DRUGS (5)
  1. SKENAN [Suspect]
     Active Substance: MORPHINE SULFATE
     Indication: PRODUCT USED FOR UNKNOWN INDICATION
     Dosage: UNK, NON RENSEIGN?E
     Route: 048
     Dates: start: 20170803, end: 20170803
  2. BROMAZEPAM [Suspect]
     Active Substance: BROMAZEPAM
     Indication: PRODUCT USED FOR UNKNOWN INDICATION
     Dosage: UNK, NON RENSEIGN?E
     Route: 048
     Dates: start: 20170803, end: 20170803
  3. PARACETAMOL [Suspect]
     Active Substance: ACETAMINOPHEN
     Indication: PRODUCT USED FOR UNKNOWN INDICATION
     Dosage: UNK, NON RENSEIGNER
     Route: 048
     Dates: start: 20170803, end: 20170803
  4. MIANSERIN [Suspect]
     Active Substance: MIANSERIN
     Indication: PRODUCT USED FOR UNKNOWN INDICATION
     Dosage: UNK, NON RENSEIGN?E
     Route: 048
     Dates: start: 20170803, end: 20170803
  5. CODEINE [Suspect]
     Active Substance: CODEINE
     Indication: PRODUCT USED FOR UNKNOWN INDICATION
     Dosage: UNK, NON RENSEIGN?E
     Route: 048
     Dates: start: 20170803, end: 20170803

REACTIONS (2)
  - Toxicity to various agents [Fatal]
  - Drug abuse [Fatal]

NARRATIVE: CASE EVENT DATE: 20170803
